FAERS Safety Report 25955421 (Version 1)
Quarter: 2025Q4

REPORT INFORMATION
  Report Type: 
  Country: CN (occurrence: CN)
  Receive Date: 20251024
  Receipt Date: 20251024
  Transmission Date: 20260117
  Serious: Yes (Hospitalization, Other)
  Sender: AKESO BIOPHARMA CO., LTD.
  Company Number: CN-Akeso Biopharma Co., Ltd.-2187205

PATIENT
  Age: 71 Year
  Sex: Male
  Weight: 60 kg

DRUGS (2)
  1. PENPULIMAB-KCQX [Suspect]
     Active Substance: PENPULIMAB-KCQX
     Indication: Adenocarcinoma gastric
     Dates: start: 20250918, end: 20250918
  2. SODIUM CHLORIDE [Concomitant]
     Active Substance: SODIUM CHLORIDE
     Dates: start: 20250918, end: 20250918

REACTIONS (2)
  - Drug-induced liver injury [Unknown]
  - Hepatic failure [Unknown]

NARRATIVE: CASE EVENT DATE: 20250927
